FAERS Safety Report 11771815 (Version 1)
Quarter: 2015Q4

REPORT INFORMATION
  Report Type: Spontaneous
  Country: US (occurrence: None)
  Receive Date: 20151123
  Receipt Date: 20151123
  Transmission Date: 20160304
  Serious: Yes (Life-Threatening, Hospitalization)
  Sender: FDA-Public Use
  Company Number: None

PATIENT
  Age: 75 Year
  Sex: Male
  Weight: 104.33 kg

DRUGS (4)
  1. LYRICA [Concomitant]
     Active Substance: PREGABALIN
  2. HUMULIN R [Suspect]
     Active Substance: INSULIN HUMAN
     Indication: BLOOD GLUCOSE ABNORMAL
     Dosage: -8-16 UNITS TWICE DAILY INTO THE MUSCLE
     Route: 030
     Dates: start: 20151019, end: 20151116
  3. VITAIMINS [Concomitant]
  4. FOMAX [Concomitant]

REACTIONS (5)
  - Head injury [None]
  - Amnesia [None]
  - Apnoea [None]
  - Cerebral haemorrhage [None]
  - Blood glucose decreased [None]

NARRATIVE: CASE EVENT DATE: 20151116
